FAERS Safety Report 12952233 (Version 1)
Quarter: 2016Q4

REPORT INFORMATION
  Report Type: Spontaneous
  Country: US (occurrence: US)
  Receive Date: 20161117
  Receipt Date: 20161117
  Transmission Date: 20170207
  Serious: Yes (Other)
  Sender: FDA-Public Use
  Company Number: US-NOVOPROD-493401

PATIENT
  Age: 29 Year
  Sex: Male
  Weight: 90.7 kg

DRUGS (6)
  1. NOVOLOG [Suspect]
     Active Substance: INSULIN ASPART
     Indication: TYPE 1 DIABETES MELLITUS
     Dosage: UNKNOWN
     Route: 058
     Dates: start: 2015, end: 201605
  2. NOVOLOG [Suspect]
     Active Substance: INSULIN ASPART
     Dosage: 10 TO 20 UNITS WITH MEALS (60 CARBS ABOUT 10 UNITS OF INSULIN), SLIDING SCALE AS NEEDED
     Route: 058
     Dates: start: 201605, end: 20160517
  3. NOVOLOG [Suspect]
     Active Substance: INSULIN ASPART
     Dosage: 10 U, SINGLE
     Route: 058
     Dates: start: 20160518, end: 20160518
  4. NOVOLOG [Suspect]
     Active Substance: INSULIN ASPART
     Dosage: 18 U, SINGLE
     Route: 058
     Dates: start: 20160518, end: 20160518
  5. NOVOLOG [Suspect]
     Active Substance: INSULIN ASPART
     Dosage: UNKNOWN
     Dates: start: 201605
  6. LEVEMIR [Concomitant]
     Active Substance: INSULIN DETEMIR
     Indication: TYPE 1 DIABETES MELLITUS
     Route: 058

REACTIONS (2)
  - Product quality issue [Unknown]
  - Blood glucose increased [Recovered/Resolved]

NARRATIVE: CASE EVENT DATE: 201605
